FAERS Safety Report 10273987 (Version 1)
Quarter: 2014Q2

REPORT INFORMATION
  Report Type: Spontaneous
  Country: US (occurrence: None)
  Receive Date: 20140630
  Receipt Date: 20140630
  Transmission Date: 20141212
  Serious: Yes (Death)
  Sender: FDA-Public Use
  Company Number: None

PATIENT
  Age: 67 Year
  Sex: Female
  Weight: 75 kg

DRUGS (1)
  1. CETUXIMAB (ERBITUX) (714692) [Suspect]

REACTIONS (16)
  - Nausea [None]
  - Vomiting [None]
  - Dizziness [None]
  - Vision blurred [None]
  - Cough [None]
  - Dehydration [None]
  - Decreased appetite [None]
  - Constipation [None]
  - Diarrhoea [None]
  - Lymphopenia [None]
  - Failure to thrive [None]
  - Pancytopenia [None]
  - Hypotension [None]
  - Renal failure acute [None]
  - Iatrogenic injury [None]
  - Shock [None]
